FAERS Safety Report 19315880 (Version 1)
Quarter: 2021Q2

REPORT INFORMATION
  Report Type: Report from Study
  Country: US (occurrence: US)
  Receive Date: 20210528
  Receipt Date: 20210528
  Transmission Date: 20210717
  Serious: No
  Sender: FDA-Public Use
  Company Number: US-ACADIA PHARMACEUTICALS INC.-ACA-2021-PIM-001681

PATIENT
  Sex: Male

DRUGS (8)
  1. INBRIJA [Concomitant]
     Active Substance: LEVODOPA
  2. DONEPEZIL. [Concomitant]
     Active Substance: DONEPEZIL
  3. NUPLAZID [Suspect]
     Active Substance: PIMAVANSERIN TARTRATE
     Dosage: UNK
     Route: 065
  4. GOCOVRI [Concomitant]
     Active Substance: AMANTADINE
     Indication: DYSKINESIA
     Dosage: 274 MILLIGRAM, QD
     Route: 048
     Dates: start: 20180423
  5. RYTARY [Concomitant]
     Active Substance: CARBIDOPA\LEVODOPA
  6. TYLENOL [Concomitant]
     Active Substance: ACETAMINOPHEN
  7. NEUPRO [Concomitant]
     Active Substance: ROTIGOTINE
  8. MELATONIN [Concomitant]
     Active Substance: MELATONIN

REACTIONS (1)
  - Dementia [Unknown]
